FAERS Safety Report 23478986 (Version 1)
Quarter: 2024Q1

REPORT INFORMATION
  Report Type: Report from Study
  Country: US (occurrence: US)
  Receive Date: 20240205
  Receipt Date: 20240205
  Transmission Date: 20240410
  Serious: No
  Sender: FDA-Public Use
  Company Number: US-EXELIXIS-CABO-23070237

PATIENT
  Sex: Female

DRUGS (1)
  1. CABOMETYX [Suspect]
     Active Substance: CABOZANTINIB S-MALATE
     Indication: Renal cancer
     Dosage: 60 MG, QD
     Route: 048
     Dates: start: 202210

REACTIONS (9)
  - Peripheral swelling [Unknown]
  - Insomnia [Unknown]
  - Rhinalgia [Unknown]
  - Haemoptysis [Recovered/Resolved]
  - Hair colour changes [Unknown]
  - Pruritus [Unknown]
  - Dizziness [Unknown]
  - Gingival pain [Unknown]
  - Oral pain [Unknown]
